FAERS Safety Report 21054563 (Version 5)
Quarter: 2024Q1

REPORT INFORMATION
  Report Type: Spontaneous
  Country: CA (occurrence: CA)
  Receive Date: 20220707
  Receipt Date: 20240322
  Transmission Date: 20240410
  Serious: Yes (Other)
  Sender: FDA-Public Use
  Company Number: CA-PFIZER INC-202200929580

PATIENT
  Age: 79 Year
  Sex: Female

DRUGS (9)
  1. VYNDAQEL [Suspect]
     Active Substance: TAFAMIDIS MEGLUMINE
     Indication: Cardiac amyloidosis
     Dosage: 80 MG, 1X/DAY
     Route: 048
     Dates: start: 20220607, end: 20220707
  2. AMLODIPINE [Concomitant]
     Active Substance: AMLODIPINE BESYLATE
     Dosage: 5 MG
     Route: 065
  3. ALLOPURINOL [Concomitant]
     Active Substance: ALLOPURINOL
     Dosage: 200 MG
     Route: 065
  4. ELIQUIS [Concomitant]
     Active Substance: APIXABAN
     Dosage: 2.5 MG (1 DF)
     Route: 065
  5. FUROSEMIDE [Concomitant]
     Active Substance: FUROSEMIDE
     Dosage: 40 MG, 2X/DAY
     Route: 065
  6. METOPROLOL [Concomitant]
     Active Substance: METOPROLOL
     Dosage: 50 MG
     Route: 065
  7. ROSUVASTATIN [Concomitant]
     Active Substance: ROSUVASTATIN
     Dosage: 5 MG
     Route: 065
  8. TRAZODONE [Concomitant]
     Active Substance: TRAZODONE HYDROCHLORIDE
     Dosage: 50 MG
     Route: 065
  9. VYNDAMAX [Concomitant]
     Active Substance: TAFAMIDIS
     Indication: Cardiac amyloidosis
     Dosage: 61 MG, 1X/DAY
     Route: 048

REACTIONS (8)
  - Diarrhoea [Recovered/Resolved]
  - Hypokalaemia [Recovering/Resolving]
  - Atrial fibrillation [Unknown]
  - Hypomagnesaemia [Recovering/Resolving]
  - Dehydration [Recovering/Resolving]
  - Fatigue [Unknown]
  - Heart rate increased [Unknown]
  - Hypertension [Unknown]

NARRATIVE: CASE EVENT DATE: 20220601
